FAERS Safety Report 5102862-1 (Version None)
Quarter: 2006Q3

REPORT INFORMATION
  Report Type: 
  Country: None (occurrence: None)
  Receive Date: 20060912
  Receipt Date: 20060831
  Transmission Date: 20061208
  Serious: Yes (Other)
  Sender: FDA-Public Use
  Company Number: US-SANOFI-SYNTHELABO-A03200605497

PATIENT
  Sex: Female
  Weight: 78 kg

DRUGS (4)
  1. AMBIEN [Suspect]
     Indication: INSOMNIA
     Dosage: UNK
     Route: 048
     Dates: start: 20000101
  2. TRAZODONE HCL [Concomitant]
     Route: 048
  3. ZOLOFT [Concomitant]
     Route: 048
  4. ATENOLOL [Concomitant]
     Dosage: UNK
     Route: 048

REACTIONS (9)
  - AMNESIA [None]
  - CONCUSSION [None]
  - DEPENDENCE [None]
  - FEELING ABNORMAL [None]
  - HEADACHE [None]
  - JOINT STIFFNESS [None]
  - MUSCULOSKELETAL STIFFNESS [None]
  - NAUSEA [None]
  - ROAD TRAFFIC ACCIDENT [None]
